FAERS Safety Report 6267346-6 (Version None)
Quarter: 2009Q3

REPORT INFORMATION
  Report Type: 
  Country: None (occurrence: None)
  Receive Date: 20090714
  Receipt Date: 20090707
  Transmission Date: 20100115
  Serious: Yes (Other)
  Sender: FDA-Public Use
  Company Number: A0795763A

PATIENT
  Sex: Female

DRUGS (1)
  1. VERAMYST [Suspect]
     Route: 045

REACTIONS (3)
  - OESOPHAGEAL CANDIDIASIS [None]
  - OESOPHAGEAL SPASM [None]
  - OESOPHAGITIS [None]
